FAERS Safety Report 5592491-8 (Version None)
Quarter: 2008Q1

REPORT INFORMATION
  Report Type: 
  Country: None (occurrence: None)
  Receive Date: 20080115
  Receipt Date: 20080103
  Transmission Date: 20080703
  Serious: Yes (Other)
  Sender: FDA-Public Use
  Company Number: US-PFIZER INC-2007103695

PATIENT
  Sex: Female
  Weight: 56.8 kg

DRUGS (1)
  1. CHANTIX [Suspect]
     Indication: SMOKING CESSATION THERAPY

REACTIONS (6)
  - BLOOD PRESSURE INCREASED [None]
  - BRADYPHRENIA [None]
  - CONFUSIONAL STATE [None]
  - DIZZINESS [None]
  - MEMORY IMPAIRMENT [None]
  - NAUSEA [None]
